FAERS Safety Report 14728734 (Version 1)
Quarter: 2018Q2

REPORT INFORMATION
  Report Type: Spontaneous
  Country: US (occurrence: US)
  Receive Date: 20180406
  Receipt Date: 20180406
  Transmission Date: 20180711
  Serious: Yes (Death, Other)
  Sender: FDA-Public Use
  Company Number: US-MYLANLABS-2018M1021809

PATIENT
  Age: 60 Year
  Sex: Female

DRUGS (1)
  1. FLUOROURACIL. [Suspect]
     Active Substance: FLUOROURACIL
     Indication: MUCINOUS ADENOCARCINOMA OF APPENDIX
     Dosage: FORMULATION: INFUSION
     Route: 065

REACTIONS (3)
  - Neutropenia [Unknown]
  - Enterocutaneous fistula [Unknown]
  - Alopecia totalis [Unknown]
